FAERS Safety Report 9540944 (Version 1)
Quarter: 2013Q3

REPORT INFORMATION
  Report Type: Report from Study
  Country: US (occurrence: US)
  Receive Date: 20130921
  Receipt Date: 20130921
  Transmission Date: 20140515
  Serious: Yes (Hospitalization)
  Sender: FDA-Public Use
  Company Number: US-ROCHE-1273506

PATIENT
  Age: 74 Year
  Sex: Female
  Weight: 81.72 kg

DRUGS (2)
  1. KADCYLA [Suspect]
     Indication: BREAST CANCER
     Route: 042
     Dates: start: 201305
  2. BABY ASA [Concomitant]
     Route: 048

REACTIONS (4)
  - Sepsis [Recovering/Resolving]
  - Dyspnoea [Unknown]
  - Vomiting [Recovered/Resolved]
  - Epistaxis [Not Recovered/Not Resolved]
